FAERS Safety Report 20307487 (Version 1)
Quarter: 2022Q1

REPORT INFORMATION
  Report Type: Spontaneous
  Country: FR (occurrence: FR)
  Receive Date: 20220107
  Receipt Date: 20220107
  Transmission Date: 20220424
  Serious: Yes (Hospitalization)
  Sender: FDA-Public Use
  Company Number: None

PATIENT
  Age: 33 Year
  Sex: Male

DRUGS (3)
  1. SILDENAFIL [Suspect]
     Active Substance: SILDENAFIL
     Dosage: UNSPECIFIED DOSE, THERAPY START DATE: ASKU, THERAPY END DATE: NASK
     Route: 065
  2. CANNABIS SATIVA SUBSP. INDICA TOP [Suspect]
     Active Substance: CANNABIS SATIVA SUBSP. INDICA TOP
     Dosage: UNSPECIFIED DOSE, THERAPY START DATE: ASKU, THERAPY END DATE: NASK
     Route: 065
  3. 3-METHYLMETHCATHINONE [Suspect]
     Active Substance: 3-METHYLMETHCATHINONE
     Dosage: UNSPECIFIED DOSE, THERAPY START DATE: ASKU, THERAPY END DATE: NASK
     Route: 065

REACTIONS (2)
  - Coma [Recovered/Resolved]
  - Drug abuse [Unknown]

NARRATIVE: CASE EVENT DATE: 20210801
